FAERS Safety Report 20911884 (Version 1)
Quarter: 2022Q2

REPORT INFORMATION
  Report Type: Spontaneous
  Country: CN (occurrence: CN)
  Receive Date: 20220603
  Receipt Date: 20220603
  Transmission Date: 20220721
  Serious: Yes (Hospitalization)
  Sender: FDA-Public Use
  Company Number: CN-ORGANON-O2205CHN002451

PATIENT
  Age: 42 Year
  Sex: Female

DRUGS (2)
  1. DIPROSPAN [Suspect]
     Active Substance: BETAMETHASONE DIPROPIONATE\BETAMETHASONE SODIUM PHOSPHATE
     Indication: Antiinflammatory therapy
     Dosage: 1 MILLILITER, QD
     Route: 014
     Dates: start: 20220518, end: 20220518
  2. DIPROSPAN [Suspect]
     Active Substance: BETAMETHASONE DIPROPIONATE\BETAMETHASONE SODIUM PHOSPHATE
     Indication: Analgesic therapy

REACTIONS (6)
  - Dyspnoea [Recovered/Resolved]
  - Pruritus [Recovered/Resolved]
  - Chest discomfort [Recovering/Resolving]
  - Oropharyngeal discomfort [Recovering/Resolving]
  - Lip swelling [Recovering/Resolving]
  - Enlarged uvula [Recovering/Resolving]

NARRATIVE: CASE EVENT DATE: 20220518
